FAERS Safety Report 16017545 (Version 3)
Quarter: 2025Q4

REPORT INFORMATION
  Report Type: Spontaneous
  Country: US (occurrence: US)
  Receive Date: 20190228
  Receipt Date: 20251222
  Transmission Date: 20260118
  Serious: Yes (Hospitalization)
  Sender: ALEXION PHARMACEUTICALS
  Company Number: US-ALEXION PHARMACEUTICALS INC.-A201902895

PATIENT
  Age: 28 Year
  Sex: Female

DRUGS (4)
  1. SOLIRIS [Suspect]
     Active Substance: ECULIZUMAB
     Indication: Sickle cell disease
     Dosage: 900 MG, SINGLE
  2. SOLIRIS [Suspect]
     Active Substance: ECULIZUMAB
     Indication: Transfusion reaction
  3. SOLIRIS [Suspect]
     Active Substance: ECULIZUMAB
     Indication: Haemolysis
  4. SOLIRIS [Suspect]
     Active Substance: ECULIZUMAB
     Indication: Off label use

REACTIONS (1)
  - Off label use [Recovered/Resolved]
